FAERS Safety Report 9722855 (Version 1)
Quarter: 2013Q4

REPORT INFORMATION
  Report Type: Spontaneous
  Country: US (occurrence: None)
  Receive Date: 20131126
  Receipt Date: 20131126
  Transmission Date: 20140711
  Serious: Yes (Hospitalization)
  Sender: FDA-Public Use
  Company Number: 2013AP009889

PATIENT
  Age: 34 Year
  Sex: Male

DRUGS (2)
  1. DOXAZOSIN MESYLATE [Suspect]
     Dosage: UNK;PO
     Route: 048
  2. PROPRANOLOL [Suspect]
     Dosage: UNK;PO
     Route: 048

REACTIONS (5)
  - Circulatory collapse [None]
  - Renal failure [None]
  - Overdose [None]
  - Lethargy [None]
  - Bradycardia [None]
